FAERS Safety Report 5355261-1 (Version None)
Quarter: 2007Q2

REPORT INFORMATION
  Report Type: 
  Country: None (occurrence: None)
  Receive Date: 20070525
  Receipt Date: 20070321
  Transmission Date: 20071010
  Serious: Yes (Hospitalization)
  Sender: FDA-Public Use
  Company Number: 2007SP000946

PATIENT
  Age: 72 Year
  Sex: Female
  Weight: 68.0396 kg

DRUGS (7)
  1. XOPENEX [Suspect]
     Indication: EMPHYSEMA
     Dosage: 1.25 MG/3ML;Q4H;INHALATION
     Route: 055
     Dates: start: 20040101
  2. TIOTROPIUM BROMIDE [Concomitant]
  3. LEVOTHYROXINE SODIUM [Concomitant]
  4. ALPRAZOLAM [Concomitant]
  5. LEXAPRO [Concomitant]
  6. LISINOPRIL [Concomitant]
  7. OXYGEN [Concomitant]

REACTIONS (4)
  - DIARRHOEA [None]
  - DRUG INEFFECTIVE [None]
  - DYSPNOEA [None]
  - NAUSEA [None]
